FAERS Safety Report 4375344-2 (Version None)
Quarter: 2004Q2

REPORT INFORMATION
  Report Type: 
  Country: None (occurrence: None)
  Receive Date: 20040601
  Receipt Date: 20040513
  Transmission Date: 20050107
  Serious: Yes (Other)
  Sender: FDA-Public Use
  Company Number: 601260

PATIENT
  Age: 1 Year
  Sex: Female
  Weight: 12 kg

DRUGS (1)
  1. TISSEEL VH KIT [Suspect]
     Indication: SKIN GRAFT
     Dates: start: 20040426, end: 20040426

REACTIONS (3)
  - INFECTION [None]
  - POST PROCEDURAL COMPLICATION [None]
  - SKIN GRAFT FAILURE [None]
